FAERS Safety Report 16535517 (Version 9)
Quarter: 2021Q1

REPORT INFORMATION
  Report Type: Spontaneous
  Country: PR (occurrence: PR)
  Receive Date: 20190705
  Receipt Date: 20210223
  Transmission Date: 20210419
  Serious: No
  Sender: FDA-Public Use
  Company Number: PR-PFIZER INC-2019281420

PATIENT
  Age: 77 Year
  Sex: Female

DRUGS (1)
  1. IBRANCE [Suspect]
     Active Substance: PALBOCICLIB
     Indication: BREAST CANCER FEMALE
     Dosage: 125 MG, UNK
     Dates: end: 20200220

REACTIONS (4)
  - Memory impairment [Unknown]
  - Hypoacusis [Unknown]
  - Post procedural complication [Unknown]
  - Weight increased [Unknown]
